FAERS Safety Report 21985363 (Version 1)
Quarter: 2023Q1

REPORT INFORMATION
  Report Type: Spontaneous
  Country: US (occurrence: None)
  Receive Date: 20230210
  Receipt Date: 20230210
  Transmission Date: 20230417
  Serious: No
  Sender: FDA-Public Use
  Company Number: None

PATIENT
  Sex: Female

DRUGS (1)
  1. STELARA [Suspect]
     Active Substance: USTEKINUMAB
     Indication: Colitis ulcerative
     Dosage: OTHER FREQUENCY : 8 WEEKS;?
     Route: 058
     Dates: start: 202212

REACTIONS (5)
  - Therapeutic product effect incomplete [None]
  - Haemorrhage [None]
  - Diarrhoea [None]
  - Fear of injection [None]
  - Product substitution issue [None]
